FAERS Safety Report 12800034 (Version 1)
Quarter: 2016Q3

REPORT INFORMATION
  Report Type: Spontaneous
  Country: BR (occurrence: BR)
  Receive Date: 20160930
  Receipt Date: 20160930
  Transmission Date: 20161109
  Serious: Yes (Death)
  Sender: FDA-Public Use
  Company Number: BR-PFIZER INC-2016453352

PATIENT
  Sex: Female

DRUGS (2)
  1. FIBRASE [Suspect]
     Active Substance: CHLORAMPHENICOL
     Indication: SCAR
     Dosage: 3X/DAY
  2. FIBRASE [Suspect]
     Active Substance: CHLORAMPHENICOL
     Indication: WOUND

REACTIONS (2)
  - Intentional product misuse [Unknown]
  - Urinary tract infection [Fatal]
